FAERS Safety Report 10075423 (Version 2)
Quarter: 2014Q2

REPORT INFORMATION
  Report Type: Spontaneous
  Country: US (occurrence: US)
  Receive Date: 20140414
  Receipt Date: 20140415
  Transmission Date: 20141212
  Serious: Yes (Other)
  Sender: FDA-Public Use
  Company Number: US-DRREDDYS-USA/USA/14/0039584

PATIENT
  Age: 17 Year
  Sex: Male

DRUGS (1)
  1. ZENATANE [Suspect]
     Indication: ACNE
     Route: 048
     Dates: start: 20140214, end: 20140320

REACTIONS (1)
  - Negative thoughts [Recovered/Resolved]
